FAERS Safety Report 8838369 (Version 1)
Quarter: 2012Q4

REPORT INFORMATION
  Report Type: 
  Country: HU (occurrence: HU)
  Receive Date: 20121012
  Receipt Date: 20121012
  Transmission Date: 20130627
  Serious: Yes (Other)
  Sender: FDA-Public Use
  Company Number: HU-JNJFOC-20121006784

PATIENT
  Age: 42 Year
  Sex: Male

DRUGS (2)
  1. ZALDIAR [Suspect]
     Indication: URETHRITIS
     Route: 048
     Dates: start: 20120802, end: 20120810
  2. CEFUROXIME AXETIL [Suspect]
     Indication: URINARY TRACT DISORDER
     Route: 048
     Dates: start: 20120802, end: 20120810

REACTIONS (5)
  - Drug-induced liver injury [Recovered/Resolved]
  - Liver injury [Recovered/Resolved]
  - Hepatocellular injury [Recovered/Resolved]
  - Hepatic enzyme increased [Recovered/Resolved]
  - Fatigue [Recovered/Resolved]
